FAERS Safety Report 22139075 (Version 1)
Quarter: 2023Q1

REPORT INFORMATION
  Report Type: Spontaneous
  Country: NL (occurrence: None)
  Receive Date: 20230327
  Receipt Date: 20230327
  Transmission Date: 20230417
  Serious: Yes (Death, Hospitalization)
  Sender: FDA-Public Use
  Company Number: None

PATIENT
  Sex: Male
  Weight: 80 kg

DRUGS (5)
  1. PIRFENIDONE [Suspect]
     Active Substance: PIRFENIDONE
     Indication: Idiopathic pulmonary fibrosis
     Dosage: 3X P DAY 3 PIECES; ON 2-14-23 REDUCED TO 3D2 PIECE
     Route: 048
     Dates: start: 20230130, end: 20230303
  2. ACETAMINOPHEN [Suspect]
     Active Substance: ACETAMINOPHEN
     Indication: Pain
     Dosage: 3 X A DAY 2 PCS
     Route: 065
     Dates: start: 20170501
  3. RIVAROXABAN [Suspect]
     Active Substance: RIVAROXABAN
     Indication: Pulmonary embolism
     Dosage: 1DD20MG
     Route: 065
     Dates: start: 20220520
  4. ACETYLCYSTEINE [Concomitant]
     Active Substance: ACETYLCYSTEINE
     Dosage: OPLOSSING VOOR INFUUS, 200 MG/ML (MILLIGRAM PER MILLILITER)
  5. DEXTROSE [Concomitant]
     Active Substance: DEXTROSE
     Dosage: INFUSIEVLOEISTOF, 100 MG/ML (MILLIGRAM PER MILLILITER)

REACTIONS (1)
  - Acute hepatic failure [Fatal]
